FAERS Safety Report 4918482-5 (Version None)
Quarter: 2006Q1

REPORT INFORMATION
  Report Type: 
  Country: None (occurrence: None)
  Receive Date: 20060222
  Receipt Date: 20060213
  Transmission Date: 20060701
  Serious: Yes (Other)
  Sender: FDA-Public Use
  Company Number: JP-JNJFOC-20060202720

PATIENT
  Age: 80 Year
  Sex: Female

DRUGS (1)
  1. PRIXAR [Suspect]
     Indication: SINUSITIS
     Route: 048
     Dates: start: 20060116, end: 20060121

REACTIONS (1)
  - EXTRASYSTOLES [None]
